FAERS Safety Report 5679153-3 (Version None)
Quarter: 2008Q1

REPORT INFORMATION
  Report Type: 
  Country: None (occurrence: None)
  Receive Date: 20080325
  Receipt Date: 20080313
  Transmission Date: 20080703
  Serious: Yes (Hospitalization)
  Sender: FDA-Public Use
  Company Number: JP-SANOFI-SYNTHELABO-F01200800078

PATIENT
  Sex: Female

DRUGS (8)
  1. DORAL [Concomitant]
     Indication: INSOMNIA
     Dosage: 10 MG
     Route: 048
     Dates: start: 20070104, end: 20080108
  2. SEROQUEL [Concomitant]
     Indication: SCHIZOPHRENIA
     Dosage: 150 MG
     Route: 048
     Dates: start: 20070612, end: 20071224
  3. SEROQUEL [Concomitant]
     Dosage: 200 MG
     Route: 048
     Dates: start: 20071225, end: 20080103
  4. SEROQUEL [Concomitant]
     Dosage: 100 MG
     Route: 048
     Dates: start: 20080104, end: 20080110
  5. SEROQUEL [Concomitant]
     Dosage: 25 MG
     Route: 048
     Dates: start: 20080109, end: 20080123
  6. SEROQUEL [Concomitant]
     Dosage: 100 MG
     Route: 048
     Dates: start: 20080124
  7. ABILIFY [Concomitant]
     Indication: SCHIZOPHRENIA
     Route: 048
     Dates: start: 20070612, end: 20070724
  8. FK199B [Suspect]
     Indication: INSOMNIA
     Dosage: 6.25 MG
     Route: 048
     Dates: start: 20070807, end: 20071224

REACTIONS (1)
  - SCHIZOPHRENIA [None]
